FAERS Safety Report 6022325-9 (Version None)
Quarter: 2008Q4

REPORT INFORMATION
  Report Type: 
  Country: None (occurrence: None)
  Receive Date: 20081230
  Receipt Date: 20081226
  Transmission Date: 20090506
  Serious: Yes (Hospitalization, Other)
  Sender: FDA-Public Use
  Company Number: JP-BRISTOL-MYERS SQUIBB COMPANY-14456180

PATIENT
  Age: 47 Year
  Sex: Male

DRUGS (6)
  1. TAXOL [Suspect]
     Indication: GASTRIC CANCER
     Dosage: 14-28SEP04,93MG/WK,IVD,3D;12OC-26NOV04,109MG/WK,4D;7DEC04-15FEB05,124MG/WK,8D.RESTRD 15MAR-24MAY05.
     Route: 041
     Dates: start: 20041012
  2. DEPAS [Concomitant]
     Route: 048
     Dates: start: 20040528, end: 20081023
  3. EXCELASE [Concomitant]
     Route: 048
     Dates: start: 20040610, end: 20050228
  4. GASMOTIN [Concomitant]
     Route: 048
     Dates: start: 20040610, end: 20050228
  5. LENDORMIN [Concomitant]
     Route: 048
     Dates: start: 20040921, end: 20050830
  6. LAC-B [Concomitant]
     Route: 048
     Dates: start: 20040810, end: 20060328

REACTIONS (1)
  - PNEUMOTHORAX [None]
